FAERS Safety Report 14664313 (Version 2)
Quarter: 2018Q2

REPORT INFORMATION
  Report Type: Other
  Country: IE (occurrence: IE)
  Receive Date: 20180321
  Receipt Date: 20180413
  Transmission Date: 20180711
  Serious: Yes (Life-Threatening, Hospitalization, Other)
  Sender: FDA-Public Use
  Company Number: IE-ASPEN-GLO2018IE002652

PATIENT
  Age: 36 Year
  Sex: Female
  Weight: 83 kg

DRUGS (6)
  1. DEXAMETHASONE. [Suspect]
     Active Substance: DEXAMETHASONE
     Indication: ATYPICAL HAEMOLYTIC URAEMIC SYNDROME
     Dosage: 8 MG, QID
     Route: 065
     Dates: start: 20150619, end: 20150622
  2. DEXAMETHASONE. [Suspect]
     Active Substance: DEXAMETHASONE
     Indication: THROMBOTIC THROMBOCYTOPENIC PURPURA
  3. ECULIZUMAB [Suspect]
     Active Substance: ECULIZUMAB
     Indication: ATYPICAL HAEMOLYTIC URAEMIC SYNDROME
     Dosage: 900 MG
     Route: 065
  4. METHYLPREDNISOLONE. [Suspect]
     Active Substance: METHYLPREDNISOLONE
     Indication: THROMBOTIC THROMBOCYTOPENIC PURPURA
  5. ECULIZUMAB [Suspect]
     Active Substance: ECULIZUMAB
     Indication: THROMBOTIC THROMBOCYTOPENIC PURPURA
     Dosage: 900 MG
     Route: 065
  6. METHYLPREDNISOLONE. [Suspect]
     Active Substance: METHYLPREDNISOLONE
     Indication: ATYPICAL HAEMOLYTIC URAEMIC SYNDROME
     Dosage: 500 MG, QD
     Route: 042
     Dates: start: 20150614, end: 20150616

REACTIONS (2)
  - Cerebral aspergillosis [Unknown]
  - Candida infection [Unknown]

NARRATIVE: CASE EVENT DATE: 201506
